FAERS Safety Report 6175607-4 (Version None)
Quarter: 2009Q2

REPORT INFORMATION
  Report Type: 
  Country: None (occurrence: None)
  Receive Date: 20090429
  Receipt Date: 20090416
  Transmission Date: 20091009
  Serious: Yes (Other)
  Sender: FDA-Public Use
  Company Number: 2009S1000136

PATIENT
  Age: 63 Year
  Sex: Female

DRUGS (2)
  1. ACITRETIN [Suspect]
     Indication: PSORIASIS
     Dosage: 50 MG; QD; PO; 35 MG; QD; PO
     Route: 048
     Dates: start: 20050501, end: 20081201
  2. ACITRETIN [Suspect]
     Indication: PSORIASIS
     Dosage: 50 MG; QD; PO; 35 MG; QD; PO
     Route: 048
     Dates: start: 20090301

REACTIONS (13)
  - DIABETES MELLITUS [None]
  - DRUG INEFFECTIVE [None]
  - DRY MOUTH [None]
  - ERYTHEMA [None]
  - GLAUCOMA [None]
  - GLOSSODYNIA [None]
  - ONYCHOCLASIS [None]
  - ORAL DISCOMFORT [None]
  - PRURITUS [None]
  - SKIN EXFOLIATION [None]
  - SWELLING FACE [None]
  - THERAPEUTIC RESPONSE DECREASED [None]
  - WEIGHT DECREASED [None]
